FAERS Safety Report 18359912 (Version 2)
Quarter: 2020Q4

REPORT INFORMATION
  Report Type: Report from Study
  Country: AT (occurrence: AT)
  Receive Date: 20201008
  Receipt Date: 20201231
  Transmission Date: 20210114
  Serious: Yes (Hospitalization, Other)
  Sender: FDA-Public Use
  Company Number: AT-ACCORD-204516

PATIENT
  Sex: Female
  Weight: 80.4 kg

DRUGS (36)
  1. DOCETAXEL. [Suspect]
     Active Substance: DOCETAXEL
     Indication: BREAST CANCER METASTATIC
     Dosage: MOST RECENT DOSE PRIOR TO THE EVENTS: 09/JUN/2017
     Route: 042
     Dates: start: 20170224, end: 20170317
  2. LAPATINIB/LAPATINIB DITOSYLATE [Suspect]
     Active Substance: LAPATINIB
     Indication: BREAST CANCER
     Dosage: MOST RECENT DOSE PRIOR TO THE EVENT LYMPH NODE METASTATIS AXILLA
     Route: 048
     Dates: start: 20191002, end: 20200107
  3. TRASTUZUMAB/EMTANSINE [Suspect]
     Active Substance: ADO-TRASTUZUMAB EMTANSINE
     Indication: BREAST CANCER METASTATIC
     Route: 042
     Dates: start: 20190306, end: 20190909
  4. LEUKICHTAN [Concomitant]
     Dates: start: 20200430, end: 20200515
  5. OLEA EUROPAEA [Concomitant]
     Indication: PARONYCHIA
     Dates: start: 20191002, end: 20200512
  6. PARACETAMOL [Concomitant]
     Active Substance: ACETAMINOPHEN
     Dates: start: 20200506
  7. PANTOPRAZOLE [Concomitant]
     Active Substance: PANTOPRAZOLE
     Dates: start: 20170722, end: 20180327
  8. NOVALGIN [Concomitant]
     Dates: start: 20170329, end: 20180807
  9. FUROSEMIDE. [Concomitant]
     Active Substance: FUROSEMIDE
     Dosage: ONGOING IS EQUAL TO NOT CHECKED
     Dates: start: 20170810, end: 20171213
  10. POTASSIUM CHLORIDE. [Concomitant]
     Active Substance: POTASSIUM CHLORIDE
     Dates: start: 20170429
  11. TAZONAM [Concomitant]
     Active Substance: TAZOBACTAM
     Indication: STREPTOCOCCAL SEPSIS
     Dates: start: 20200423, end: 20200504
  12. FUROSEMIDE. [Concomitant]
     Active Substance: FUROSEMIDE
     Dates: start: 20170810
  13. LOVENOX [Concomitant]
     Active Substance: ENOXAPARIN SODIUM
     Dates: start: 20170224, end: 20171130
  14. OLEOVIT [Concomitant]
     Dates: start: 20170329
  15. EUTHYROX [Concomitant]
     Active Substance: LEVOTHYROXINE SODIUM
     Dates: start: 20170303
  16. PANTOPRAZOLE [Concomitant]
     Active Substance: PANTOPRAZOLE
     Dates: start: 20200506, end: 20200519
  17. FORTECORTIN [Concomitant]
     Active Substance: DEXAMETHASONE
     Indication: BRAIN OEDEMA
     Dates: start: 20171004, end: 20171006
  18. FULVESTRANT. [Suspect]
     Active Substance: FULVESTRANT
     Indication: BREAST CANCER
     Dosage: MOST RECENT DOSE PRIOR TO THE EVENT LYMPH NODE METASTATIS AXILLA
     Route: 030
     Dates: start: 20171002, end: 20171115
  19. CALCIUM/COLECALCIFEROL [Concomitant]
     Active Substance: CALCIUM\CHOLECALCIFEROL
     Dosage: ONGOING IS EQUAL TO CHECKED
     Dates: start: 20170203
  20. NERIFORTE [Concomitant]
     Indication: SKIN FISSURES
     Dates: start: 20200430, end: 20200515
  21. EMEND [Concomitant]
     Active Substance: APREPITANT
     Dates: start: 20200428, end: 20200430
  22. TAVANIC [Concomitant]
     Active Substance: LEVOFLOXACIN
     Dates: start: 20200506, end: 20200512
  23. XGEVA [Concomitant]
     Active Substance: DENOSUMAB
     Dates: start: 20170202
  24. LIXIANA [Concomitant]
     Active Substance: EDOXABAN TOSYLATE
     Dates: start: 20191120, end: 20200608
  25. FORTECORTIN [Concomitant]
     Active Substance: DEXAMETHASONE
     Indication: BRAIN OEDEMA
     Dosage: ONGOING IS EQUAL TO NOT CHECKED
     Dates: start: 20171007, end: 20171008
  26. TRASTUZUMAB. [Suspect]
     Active Substance: TRASTUZUMAB
     Indication: BREAST CANCER METASTATIC
     Dosage: MOST RECENT DOSE PRIOR TO THE EVENTS: 10/AUG/2017
     Route: 041
     Dates: start: 20170224, end: 20170224
  27. PERTUZUMAB. [Suspect]
     Active Substance: PERTUZUMAB
     Indication: BREAST CANCER METASTATIC
     Dosage: MOST RECENT DOSE PRIOR TO THE EVENT WORSENING OF BRAIN METASTASES: 17/MAR/2017
     Route: 042
     Dates: start: 20170224, end: 20170224
  28. KALIORAL [Concomitant]
     Dates: start: 20200427, end: 20200428
  29. PREGABALIN. [Concomitant]
     Active Substance: PREGABALIN
     Dates: start: 20190821
  30. CAPECITABINE. [Suspect]
     Active Substance: CAPECITABINE
     Indication: BREAST CANCER
     Dosage: MOST RECENT DOSE PRIOR TO THE EVENT LYMPH NODE METASTATIS AXILLA
     Route: 048
     Dates: start: 20191002, end: 20200107
  31. VINORELBINE [Suspect]
     Active Substance: VINORELBINE TARTRATE
     Indication: BREAST CANCER METASTATIC
     Route: 042
     Dates: start: 20200422
  32. FORTECORTIN [Concomitant]
     Active Substance: DEXAMETHASONE
     Indication: BRAIN OEDEMA
     Dates: start: 20200422, end: 20200505
  33. ZOFRAN [Concomitant]
     Active Substance: ONDANSETRON HYDROCHLORIDE
     Dates: start: 20200506
  34. BETAISODONA [Concomitant]
     Active Substance: POVIDONE-IODINE
     Indication: SKIN FISSURES
     Dosage: ONGOING NOT CHECKED
     Dates: start: 20200430, end: 20200515
  35. PASPERTIN [Concomitant]
     Dates: start: 20200506
  36. FENTANYL. [Concomitant]
     Active Substance: FENTANYL
     Dates: start: 20200515

REACTIONS (11)
  - Metastases to central nervous system [Not Recovered/Not Resolved]
  - Pleural effusion [Not Recovered/Not Resolved]
  - Vomiting [Recovered/Resolved]
  - Fatigue [Not Recovered/Not Resolved]
  - Brain oedema [Not Recovered/Not Resolved]
  - Metastases to lymph nodes [Not Recovered/Not Resolved]
  - Vascular device infection [Recovered/Resolved]
  - Pseudomonal sepsis [Recovered/Resolved]
  - Back pain [Recovered/Resolved]
  - Nausea [Recovered/Resolved]
  - Streptococcal sepsis [Recovered/Resolved]

NARRATIVE: CASE EVENT DATE: 20170921
